FAERS Safety Report 9111451 (Version 1)
Quarter: 2013Q1

REPORT INFORMATION
  Report Type: Spontaneous
  Country: US (occurrence: US)
  Receive Date: 20130219
  Receipt Date: 20130219
  Transmission Date: 20140127
  Serious: No
  Sender: FDA-Public Use
  Company Number: US-BRISTOL-MYERS SQUIBB COMPANY-16962953

PATIENT
  Age: 64 Year
  Sex: Female
  Weight: 68.93 kg

DRUGS (8)
  1. ABATACEPT SUBQ INJECTION 125MG/ML [Suspect]
     Indication: RHEUMATOID ARTHRITIS
     Dosage: 2ND INJ ON 13SEP12 AND LAST INF ON 13DEC2012?MAY14:2J73107
     Route: 058
  2. AMBIEN [Concomitant]
     Dosage: AT BEDTIME
  3. XANAX [Concomitant]
     Dosage: EVERY MORNING
  4. CRESTOR [Concomitant]
  5. OMEPRAZOLE [Concomitant]
  6. OXYCODONE [Concomitant]
     Dosage: 2 - 3 TIMES A DAY
  7. GABAPENTIN [Concomitant]
  8. COUMADIN [Concomitant]

REACTIONS (2)
  - Drug administration error [Unknown]
  - Gastroenteritis viral [Unknown]
